FAERS Safety Report 19156795 (Version 1)
Quarter: 2021Q2

REPORT INFORMATION
  Report Type: Report from Study
  Country: None (occurrence: CA)
  Receive Date: 20210420
  Receipt Date: 20210420
  Transmission Date: 20210717
  Serious: Yes (Hospitalization, Other)
  Sender: FDA-Public Use
  Company Number: CA-ABBVIE-21K-028-3864083-00

PATIENT
  Age: 66 Year
  Sex: Female

DRUGS (2)
  1. COVID?19 VACCINE NOS. [Concomitant]
     Active Substance: COVID-19 VACCINE NOS
     Indication: COVID-19 IMMUNISATION
     Route: 030
     Dates: start: 20210301, end: 20210301
  2. HUMIRA [Suspect]
     Active Substance: ADALIMUMAB
     Indication: CROHN^S DISEASE
     Route: 058
     Dates: start: 20130222

REACTIONS (9)
  - Dyspnoea [Not Recovered/Not Resolved]
  - Crohn^s disease [Unknown]
  - SARS-CoV-2 test positive [Recovered/Resolved]
  - Temporomandibular joint syndrome [Unknown]
  - Intestinal obstruction [Unknown]
  - Post procedural complication [Unknown]
  - Pain in extremity [Unknown]
  - Intestinal resection [Unknown]
  - Asthenia [Not Recovered/Not Resolved]

NARRATIVE: CASE EVENT DATE: 202007
